FAERS Safety Report 7151426-7 (Version None)
Quarter: 2010Q4

REPORT INFORMATION
  Report Type: 
  Country: None (occurrence: None)
  Receive Date: 20101123
  Receipt Date: 20101109
  Transmission Date: 20110411
  Serious: Yes (Other)
  Sender: FDA-Public Use
  Company Number: GB-1184075

PATIENT
  Sex: Female

DRUGS (3)
  1. AZOPT [Suspect]
     Indication: GLAUCOMA
     Dosage: 1 GTT BID OU, OPHTHALMIC
     Route: 047
  2. LUMIGAN [Suspect]
     Indication: GLAUCOMA
     Dosage: 1 GTT BID OU, OPHTHALMIC
     Route: 047
  3. COMBIGAN [Suspect]
     Indication: GLAUCOMA
     Dosage: 1 GTT QD OU, OPHTHALMIC
     Route: 047

REACTIONS (3)
  - BLINDNESS TRANSIENT [None]
  - EYE DISORDER [None]
  - SKIN DISCOLOURATION [None]
